FAERS Safety Report 11446353 (Version 1)
Quarter: 2015Q3

REPORT INFORMATION
  Report Type: Spontaneous
  Country: US (occurrence: US)
  Receive Date: 20150831
  Receipt Date: 20150831
  Transmission Date: 20151125
  Serious: No
  Sender: FDA-Public Use
  Company Number: US-ELI_LILLY_AND_COMPANY-US200811003065

PATIENT
  Age: 65 Year
  Sex: Female

DRUGS (8)
  1. CYMBALTA [Suspect]
     Active Substance: DULOXETINE HYDROCHLORIDE
     Indication: NEURALGIA
     Dosage: 30 MG, DAILY (1/D)
  2. AMOXICILLIN. [Concomitant]
     Active Substance: AMOXICILLIN
  3. CELEBREX [Concomitant]
     Active Substance: CELECOXIB
  4. AMYTRIL [Concomitant]
     Active Substance: AMITRIPTYLINE HYDROCHLORIDE
  5. VICODIN [Concomitant]
     Active Substance: ACETAMINOPHEN\HYDROCODONE BITARTRATE
     Dates: start: 2004
  6. ASPIRIN. [Concomitant]
     Active Substance: ASPIRIN
     Dates: end: 20081115
  7. ANTIHYPERTENSIVES [Concomitant]
     Active Substance: UNSPECIFIED INGREDIENT
     Indication: BLOOD PRESSURE MEASUREMENT
  8. CALCIUM WITH VITAMIN D [Concomitant]
     Active Substance: CALCIUM\VITAMIN D

REACTIONS (2)
  - Contusion [Not Recovered/Not Resolved]
  - Haemorrhoidal haemorrhage [Unknown]

NARRATIVE: CASE EVENT DATE: 200811
